FAERS Safety Report 7907107-2 (Version None)
Quarter: 2011Q4

REPORT INFORMATION
  Report Type: 
  Country: None (occurrence: None)
  Receive Date: 20111110
  Receipt Date: 20110629
  Transmission Date: 20120403
  Serious: No
  Sender: FDA-Public Use
  Company Number: US-ASTRAZENECA-2011SE39147

PATIENT
  Age: 54 Year
  Sex: Female

DRUGS (4)
  1. KLONOPIN [Concomitant]
  2. LISINOPRIL [Suspect]
     Route: 048
  3. CYMBALTA [Concomitant]
  4. LISINOPRIL [Suspect]
     Route: 048

REACTIONS (1)
  - BLOOD PRESSURE INCREASED [None]
